FAERS Safety Report 9953543 (Version 2)
Quarter: 2014Q1

REPORT INFORMATION
  Report Type: Spontaneous
  Country: GB (occurrence: GB)
  Receive Date: 20140304
  Receipt Date: 20140331
  Transmission Date: 20141002
  Serious: Yes (Death, Hospitalization, Other)
  Sender: FDA-Public Use
  Company Number: GB-TAKEDA-2014TUS001492

PATIENT
  Sex: 0

DRUGS (7)
  1. FEBUXOSTAT [Suspect]
     Indication: GOUT
     Dosage: 80 MG, QD
     Route: 048
  2. ADCAL D3 [Concomitant]
  3. BENDROFLUAZIDE [Concomitant]
  4. CO-CODAMOL [Concomitant]
  5. LEVOTHYROXINE [Concomitant]
  6. LISINOPRIL [Concomitant]
  7. OMEPRAZOLE [Concomitant]

REACTIONS (6)
  - Pancreatitis acute [Fatal]
  - Sepsis [Fatal]
  - Gastric perforation [Fatal]
  - Pneumoperitoneum [Fatal]
  - Circulatory collapse [Fatal]
  - Abdominal pain [Fatal]
